FAERS Safety Report 8433493-3 (Version None)
Quarter: 2012Q2

REPORT INFORMATION
  Report Type: 
  Country: None (occurrence: None)
  Receive Date: 20120613
  Receipt Date: 20120608
  Transmission Date: 20120825
  Serious: No
  Sender: FDA-Public Use
  Company Number: US-PFIZER INC-2012139829

PATIENT
  Sex: Female

DRUGS (7)
  1. BYSTOLIC [Suspect]
     Dosage: UNK
  2. LEXAPRO [Suspect]
     Dosage: UNK
  3. ATARAX [Suspect]
     Dosage: UNK
  4. TRAZODONE HCL [Suspect]
     Dosage: UNK
  5. ELAVIL [Suspect]
     Dosage: UNK
  6. LYRICA [Suspect]
     Dosage: UNK
  7. WELLBUTRIN [Suspect]
     Dosage: UNK

REACTIONS (1)
  - DRUG HYPERSENSITIVITY [None]
